FAERS Safety Report 17180125 (Version 1)
Quarter: 2019Q4

REPORT INFORMATION
  Report Type: Other
  Country: ES (occurrence: ES)
  Receive Date: 20191219
  Receipt Date: 20191219
  Transmission Date: 20200122
  Serious: Yes (Hospitalization)
  Sender: FDA-Public Use
  Company Number: ES-GLENMARK PHARMACEUTICALS-2019GMK044863

PATIENT

DRUGS (2)
  1. RITUXIMAB. [Suspect]
     Active Substance: RITUXIMAB
     Indication: MARGINAL ZONE LYMPHOMA
     Dosage: 1 DF, PER 28 DAYS (RITUXIMAB 375 MG/M2 D1 CADA 28 DIAS)
     Route: 042
     Dates: start: 20191128
  2. BENDAMUSTINE HYDROCHLORIDE. [Suspect]
     Active Substance: BENDAMUSTINE HYDROCHLORIDE
     Indication: MARGINAL ZONE LYMPHOMA
     Dosage: 1 DF, PER 28 DAYS (BENDAMUSTINA 70 MG/M2 IV D1-2, CADA 28 DIAS)
     Route: 042
     Dates: start: 20191128

REACTIONS (3)
  - Hypotension [Recovered/Resolved]
  - Renal impairment [Recovered/Resolved]
  - Pruritus [Recovered/Resolved]

NARRATIVE: CASE EVENT DATE: 20191128
